FAERS Safety Report 7485681-0 (Version None)
Quarter: 2011Q2

REPORT INFORMATION
  Report Type: 
  Country: None (occurrence: None)
  Receive Date: 20110517
  Receipt Date: 20100524
  Transmission Date: 20111010
  Serious: No
  Sender: FDA-Public Use
  Company Number: US-PFIZER INC-2010064934

PATIENT
  Age: 67 Year
  Sex: Female

DRUGS (1)
  1. NICOTROL [Suspect]
     Dosage: UNK

REACTIONS (1)
  - DRUG INEFFECTIVE [None]
